FAERS Safety Report 14679078 (Version 3)
Quarter: 2018Q3

REPORT INFORMATION
  Report Type: Spontaneous
  Country: DE (occurrence: DE)
  Receive Date: 20180326
  Receipt Date: 20180710
  Transmission Date: 20181010
  Serious: Yes (Hospitalization, Other)
  Sender: FDA-Public Use
  Company Number: PHHY2016DE186492

PATIENT
  Age: 74 Year
  Sex: Male
  Weight: 68.5 kg

DRUGS (9)
  1. ZOMETA [Suspect]
     Active Substance: ZOLEDRONIC ACID
     Indication: METASTASES TO BONE
     Dosage: 4 MG, UNK
     Route: 042
     Dates: start: 20160427
  2. GILOTRIF [Suspect]
     Active Substance: AFATINIB
     Dosage: 40 MG, UNK
     Route: 048
     Dates: start: 20160410, end: 20160703
  3. GILOTRIF [Suspect]
     Active Substance: AFATINIB
     Indication: NON-SMALL CELL LUNG CANCER
     Dosage: 40 MG, UNK
     Route: 048
     Dates: start: 20160306, end: 20160403
  4. GILOTRIF [Suspect]
     Active Substance: AFATINIB
     Dosage: 30 MG, UNK
     Route: 048
     Dates: start: 20160910
  5. SPIRONOLACTON [Concomitant]
     Active Substance: SPIRONOLACTONE
     Indication: ACUTE KIDNEY INJURY
     Dosage: 50 MG, UNK
     Route: 048
     Dates: end: 20160628
  6. METFORMIN [Concomitant]
     Active Substance: METFORMIN HYDROCHLORIDE
     Indication: PRODUCT USED FOR UNKNOWN INDICATION
     Dosage: 500 MG, UNK
     Route: 048
     Dates: end: 20160627
  7. GILOTRIF [Suspect]
     Active Substance: AFATINIB
     Dosage: 20 MG, UNK
     Route: 048
     Dates: start: 20160808
  8. GILOTRIF [Suspect]
     Active Substance: AFATINIB
     Dosage: 40 MG, UNK
     Route: 048
  9. GILOTRIF [Suspect]
     Active Substance: AFATINIB
     Dosage: 30 MG, UNK
     Route: 048
     Dates: start: 20160712, end: 20160802

REACTIONS (16)
  - Acute kidney injury [Recovered/Resolved]
  - Decreased appetite [Not Recovered/Not Resolved]
  - Skin infection [Recovered/Resolved]
  - Hypocalcaemia [Not Recovered/Not Resolved]
  - Cardiac failure [Recovered/Resolved]
  - Weight decreased [Not Recovered/Not Resolved]
  - Dyspnoea [Not Recovered/Not Resolved]
  - General physical health deterioration [Unknown]
  - Acute kidney injury [Not Recovered/Not Resolved]
  - Rash maculo-papular [Not Recovered/Not Resolved]
  - Dyspnoea [Recovered/Resolved]
  - Pathogen resistance [Not Recovered/Not Resolved]
  - Skin infection [Recovered/Resolved]
  - Chronic kidney disease [Not Recovered/Not Resolved]
  - Fatigue [Not Recovered/Not Resolved]
  - Diarrhoea [Not Recovered/Not Resolved]

NARRATIVE: CASE EVENT DATE: 20160309
